FAERS Safety Report 10370330 (Version 1)
Quarter: 2014Q3

REPORT INFORMATION
  Report Type: Spontaneous
  Country: US (occurrence: None)
  Receive Date: 20140805
  Receipt Date: 20140805
  Transmission Date: 20150326
  Serious: Yes (Hospitalization, Other)
  Sender: FDA-Public Use
  Company Number: DAV-AE-LOR-14-06

PATIENT
  Age: 84 Year
  Sex: Female

DRUGS (4)
  1. RISPERIDONE. [Concomitant]
     Active Substance: RISPERIDONE
  2. HALOPERIDOL. [Concomitant]
     Active Substance: HALOPERIDOL
  3. QUETIAPINE [Concomitant]
     Active Substance: QUETIAPINE
  4. LORAZEPAM. [Suspect]
     Active Substance: LORAZEPAM
     Indication: AGITATION

REACTIONS (1)
  - Agitation [None]
